FAERS Safety Report 23877829 (Version 1)
Quarter: 2024Q2

REPORT INFORMATION
  Report Type: Spontaneous
  Country: US (occurrence: None)
  Receive Date: 20240521
  Receipt Date: 20240521
  Transmission Date: 20240716
  Serious: Yes (Hospitalization, Other)
  Sender: FDA-Public Use
  Company Number: US-ROCHE-3561605

PATIENT
  Sex: Male
  Weight: 167.07 kg

DRUGS (1)
  1. OCREVUS [Suspect]
     Active Substance: OCRELIZUMAB
     Indication: Relapsing-remitting multiple sclerosis
     Dosage: YES
     Route: 065
     Dates: start: 2023

REACTIONS (4)
  - Arterial occlusive disease [Unknown]
  - Mobility decreased [Unknown]
  - Myocardial infarction [Not Recovered/Not Resolved]
  - Chest pain [Unknown]
